FAERS Safety Report 21818773 (Version 1)
Quarter: 2023Q1

REPORT INFORMATION
  Report Type: Spontaneous
  Country: ES (occurrence: ES)
  Receive Date: 20230104
  Receipt Date: 20230104
  Transmission Date: 20230418
  Serious: Yes (Other)
  Sender: FDA-Public Use
  Company Number: ES-SAMSUNG BIOEPIS-SB-2022-27936

PATIENT
  Age: 26 Year
  Sex: Male

DRUGS (6)
  1. ADALIMUMAB [Suspect]
     Active Substance: ADALIMUMAB
     Indication: Alopecia scarring
     Dosage: 40 MILLIGRAM, BIWEEKLY
     Route: 058
  2. ADALIMUMAB [Suspect]
     Active Substance: ADALIMUMAB
     Dosage: 80 MILLIGRAM,WEEK TWO
     Route: 058
  3. ADALIMUMAB [Suspect]
     Active Substance: ADALIMUMAB
     Dosage: 160 MILLIGRAM, WEEK ZERO
     Route: 058
  4. IXEKIZUMAB [Suspect]
     Active Substance: IXEKIZUMAB
     Indication: Alopecia scarring
     Dosage: 160 MILLIGRAM,AT WEEK ZERO
     Route: 058
  5. IXEKIZUMAB [Suspect]
     Active Substance: IXEKIZUMAB
     Dosage: 80 MILLIGRAM, FROM THE 16 WEEKS
     Route: 058
  6. IXEKIZUMAB [Suspect]
     Active Substance: IXEKIZUMAB
     Dosage: 80MG, AT WEEK TWO, FOUR, SIX, EIGHT, TEN, TWELVE
     Route: 058

REACTIONS (3)
  - Alopecia scarring [Unknown]
  - Skin candida [Unknown]
  - Off label use [Unknown]
